FAERS Safety Report 7580743-1 (Version None)
Quarter: 2011Q2

REPORT INFORMATION
  Report Type: 
  Country: None (occurrence: None)
  Receive Date: 20110629
  Receipt Date: 20110623
  Transmission Date: 20111010
  Serious: Yes (Death, Hospitalization, Other)
  Sender: FDA-Public Use
  Company Number: IN-PFIZER INC-2011077680

PATIENT
  Sex: Male

DRUGS (1)
  1. SUTENT [Suspect]
     Indication: RENAL CELL CARCINOMA
     Route: 048

REACTIONS (5)
  - CYSTITIS HAEMORRHAGIC [None]
  - DISEASE PROGRESSION [None]
  - HAEMATURIA [None]
  - RENAL FAILURE ACUTE [None]
  - RENAL CELL CARCINOMA [None]
